FAERS Safety Report 15956899 (Version 1)
Quarter: 2019Q1

REPORT INFORMATION
  Report Type: Spontaneous
  Country: CZ (occurrence: CZ)
  Receive Date: 20190213
  Receipt Date: 20190213
  Transmission Date: 20190417
  Serious: Yes (Other)
  Sender: FDA-Public Use
  Company Number: CZ-MYLANLABS-2019M1012308

PATIENT
  Age: 62 Year
  Sex: Male

DRUGS (9)
  1. PARICALCITOL. [Suspect]
     Active Substance: PARICALCITOL
     Dosage: 1 MICROGRAM, QD
     Route: 065
  2. SODIUM HYDROGEN CARBONATE [Concomitant]
     Active Substance: SODIUM BICARBONATE
     Indication: NEPHROPATHY
     Dosage: UNK
     Route: 065
  3. WARFARIN [Suspect]
     Active Substance: WARFARIN
     Indication: DEEP VEIN THROMBOSIS
     Dosage: UNK
     Route: 065
  4. SODIUM BICARBONATE. [Concomitant]
     Active Substance: SODIUM BICARBONATE
     Indication: NEPHROPATHY
     Dosage: UNK
     Route: 065
  5. ACETYLSALICYLIC ACID [Concomitant]
     Active Substance: ASPIRIN
     Indication: PRODUCT USED FOR UNKNOWN INDICATION
     Dosage: UNK
     Route: 065
  6. CALCIUM [Suspect]
     Active Substance: CALCIUM
     Indication: PRODUCT USED FOR UNKNOWN INDICATION
     Dosage: 1000 MILLIGRAM, UNK
     Route: 065
  7. SEVELAMER [Suspect]
     Active Substance: SEVELAMER
     Indication: NEPHROPATHY
     Dosage: UNK
     Route: 065
  8. PARICALCITOL. [Suspect]
     Active Substance: PARICALCITOL
     Indication: NEPHROPATHY
     Dosage: UNK
  9. PARICALCITOL. [Suspect]
     Active Substance: PARICALCITOL
     Dosage: 1 UNK
     Route: 065

REACTIONS (2)
  - Therapy non-responder [Unknown]
  - Calciphylaxis [Recovered/Resolved]
